FAERS Safety Report 9444671 (Version 1)
Quarter: 2013Q3

REPORT INFORMATION
  Report Type: Spontaneous
  Country: US (occurrence: None)
  Receive Date: 20130806
  Receipt Date: 20130806
  Transmission Date: 20140515
  Serious: Yes (Other)
  Sender: FDA-Public Use
  Company Number: None

PATIENT
  Age: 65 Year
  Sex: Female
  Weight: 43.09 kg

DRUGS (12)
  1. MIRTAZAPINE [Suspect]
     Indication: DEPRESSION
     Dosage: 15MG  ONE  PO  QHS
     Dates: start: 20130711, end: 20130722
  2. ESTRACE [Concomitant]
  3. KLONOPIN [Concomitant]
  4. GILENYA [Concomitant]
  5. MYSOLINE [Concomitant]
  6. WELLBUTRIN XL [Concomitant]
  7. OMEPRAZOLE [Concomitant]
  8. PRESTIQUE [Concomitant]
  9. CALCIUM [Concomitant]
  10. VIT D3 [Concomitant]
  11. MULTI-VITAMENS [Concomitant]
  12. TYLENOL [Concomitant]

REACTIONS (2)
  - Nightmare [None]
  - Panic attack [None]
